FAERS Safety Report 5124229-2 (Version None)
Quarter: 2006Q4

REPORT INFORMATION
  Report Type: 
  Country: None (occurrence: None)
  Receive Date: 20061010
  Receipt Date: 20061003
  Transmission Date: 20070319
  Serious: Yes (Hospitalization)
  Sender: FDA-Public Use
  Company Number: US-BRISTOL-MYERS SQUIBB COMPANY-13529086

PATIENT
  Age: 38 Year
  Sex: Female
  Weight: 48 kg

DRUGS (8)
  1. CETUXIMAB [Suspect]
     Indication: CERVIX CARCINOMA
     Route: 042
     Dates: start: 20060907, end: 20060907
  2. ERLOTINIB [Suspect]
     Indication: CERVIX CARCINOMA
     Route: 048
     Dates: start: 20060907
  3. DILAUDID [Concomitant]
     Dates: start: 20060810
  4. XANAX [Concomitant]
     Dates: start: 20060810
  5. ZOLOFT [Concomitant]
     Dates: start: 20060810
  6. LORAZEPAM [Concomitant]
     Dates: start: 20060810
  7. LOMOTIL [Concomitant]
     Dates: start: 20060810
  8. CODEINE [Concomitant]
     Dates: start: 20060810

REACTIONS (8)
  - BLOOD PRESSURE DECREASED [None]
  - CHILLS [None]
  - CULTURE URINE POSITIVE [None]
  - DIARRHOEA [None]
  - HYDRONEPHROSIS [None]
  - KIDNEY ENLARGEMENT [None]
  - PORTAL VEIN THROMBOSIS [None]
  - PYREXIA [None]
